FAERS Safety Report 23518693 (Version 1)
Quarter: 2024Q1

REPORT INFORMATION
  Report Type: Spontaneous
  Country: CN (occurrence: CN)
  Receive Date: 20240213
  Receipt Date: 20240213
  Transmission Date: 20240409
  Serious: Yes (Life-Threatening, Hospitalization)
  Sender: FDA-Public Use
  Company Number: CN-PFIZER INC-PV202400019783

PATIENT
  Age: 9 Year
  Sex: Female
  Weight: 21 kg

DRUGS (20)
  1. METHOTREXATE SODIUM [Suspect]
     Active Substance: METHOTREXATE SODIUM
     Indication: Precursor T-lymphoblastic lymphoma/leukaemia
     Dosage: 12.00000 MG, 1X/DAY
     Route: 037
     Dates: start: 20240118, end: 20240118
  2. METHOTREXATE SODIUM [Suspect]
     Active Substance: METHOTREXATE SODIUM
     Indication: Myelosuppression
  3. METHOTREXATE SODIUM [Suspect]
     Active Substance: METHOTREXATE SODIUM
     Indication: Neoplasm malignant
  4. METHOTREXATE SODIUM [Suspect]
     Active Substance: METHOTREXATE SODIUM
     Indication: Chemotherapy
  5. CYTARABINE [Suspect]
     Active Substance: CYTARABINE
     Indication: Precursor T-lymphoblastic lymphoma/leukaemia
     Dosage: 36.000 MG, 1X/DAY
     Route: 037
     Dates: start: 20240118, end: 20240118
  6. CYTARABINE [Suspect]
     Active Substance: CYTARABINE
     Indication: Myelosuppression
  7. CYTARABINE [Suspect]
     Active Substance: CYTARABINE
     Indication: Neoplasm malignant
  8. CYTARABINE [Suspect]
     Active Substance: CYTARABINE
     Indication: Chemotherapy
  9. PEGASPARGASE [Suspect]
     Active Substance: PEGASPARGASE
     Indication: Precursor T-lymphoblastic lymphoma/leukaemia
     Dosage: 2250.000 IU, 1X/DAY
     Route: 030
     Dates: start: 20240123, end: 20240123
  10. PEGASPARGASE [Suspect]
     Active Substance: PEGASPARGASE
     Indication: Myelosuppression
  11. PEGASPARGASE [Suspect]
     Active Substance: PEGASPARGASE
     Indication: Neoplasm malignant
  12. PEGASPARGASE [Suspect]
     Active Substance: PEGASPARGASE
     Indication: Chemotherapy
  13. CYCLOPHOSPHAMIDE [Suspect]
     Active Substance: CYCLOPHOSPHAMIDE
     Indication: Precursor T-lymphoblastic lymphoma/leukaemia
     Dosage: 0.180000 G, 2X/DAY
     Route: 041
     Dates: start: 20240119, end: 20240123
  14. CYCLOPHOSPHAMIDE [Suspect]
     Active Substance: CYCLOPHOSPHAMIDE
     Indication: Myelosuppression
  15. CYCLOPHOSPHAMIDE [Suspect]
     Active Substance: CYCLOPHOSPHAMIDE
     Indication: Neoplasm malignant
  16. CYCLOPHOSPHAMIDE [Suspect]
     Active Substance: CYCLOPHOSPHAMIDE
     Indication: Chemotherapy
  17. VINCRISTINE SULFATE [Suspect]
     Active Substance: VINCRISTINE SULFATE
     Indication: Precursor T-lymphoblastic lymphoma/leukaemia
     Dosage: 1.300 MG, 1X/DAY
     Route: 041
     Dates: start: 20240117, end: 20240118
  18. VINCRISTINE SULFATE [Suspect]
     Active Substance: VINCRISTINE SULFATE
     Indication: Myelosuppression
  19. VINCRISTINE SULFATE [Suspect]
     Active Substance: VINCRISTINE SULFATE
     Indication: Neoplasm malignant
  20. VINCRISTINE SULFATE [Suspect]
     Active Substance: VINCRISTINE SULFATE
     Indication: Chemotherapy

REACTIONS (2)
  - Myelosuppression [Recovering/Resolving]
  - Bone pain [Recovering/Resolving]

NARRATIVE: CASE EVENT DATE: 20240124
